FAERS Safety Report 6746368-2 (Version None)
Quarter: 2010Q2

REPORT INFORMATION
  Report Type: 
  Country: None (occurrence: None)
  Receive Date: 20100528
  Receipt Date: 20100524
  Transmission Date: 20101027
  Serious: Yes (Other)
  Sender: FDA-Public Use
  Company Number: US-SANOFI-AVENTIS-2010SA012693

PATIENT
  Age: 80 Year
  Sex: Male
  Weight: 86 kg

DRUGS (1)
  1. ELOXATIN [Suspect]
     Indication: LYMPHOMA
     Route: 042
     Dates: start: 20091101, end: 20091101

REACTIONS (2)
  - BLOOD URINE PRESENT [None]
  - ILL-DEFINED DISORDER [None]
